FAERS Safety Report 7526468-X (Version None)
Quarter: 2011Q2

REPORT INFORMATION
  Report Type: 
  Country: None (occurrence: None)
  Receive Date: 20110527
  Receipt Date: 20110519
  Transmission Date: 20111010
  Serious: Yes (Other)
  Sender: FDA-Public Use
  Company Number: US-1185234

PATIENT
  Age: 81 Year
  Sex: Female
  Weight: 80.7403 kg

DRUGS (2)
  1. VIGAMOX [Suspect]
     Dosage: OPHTHALMIC
     Route: 047
  2. NEVANAC [Suspect]
     Dosage: OPHTHALMIC
     Route: 047

REACTIONS (3)
  - DYSPNOEA [None]
  - HEART RATE INCREASED [None]
  - CARDIAC DISORDER [None]
